FAERS Safety Report 17706032 (Version 1)
Quarter: 2020Q2

REPORT INFORMATION
  Report Type: Spontaneous
  Country: JP (occurrence: JP)
  Receive Date: 20200424
  Receipt Date: 20200424
  Transmission Date: 20200714
  Serious: Yes (Other)
  Sender: FDA-Public Use
  Company Number: JP-PFIZER INC-2020115075

PATIENT
  Age: 9 Year
  Sex: Female

DRUGS (1)
  1. BESPONSA [Suspect]
     Active Substance: INOTUZUMAB OZOGAMICIN
     Indication: ACUTE LYMPHOCYTIC LEUKAEMIA
     Dosage: 0.8 MG/M2, DAILY
     Route: 041
     Dates: start: 20200225

REACTIONS (4)
  - Product use issue [Unknown]
  - Condition aggravated [Recovering/Resolving]
  - Off label use [Unknown]
  - Graft versus host disease [Recovering/Resolving]

NARRATIVE: CASE EVENT DATE: 2020
